FAERS Safety Report 6752554-8 (Version None)
Quarter: 2010Q2

REPORT INFORMATION
  Report Type: 
  Country: None (occurrence: None)
  Receive Date: 20100602
  Receipt Date: 20100526
  Transmission Date: 20101027
  Serious: Yes (Hospitalization)
  Sender: FDA-Public Use
  Company Number: CA-WYE-G06188710

PATIENT
  Sex: Male
  Weight: 66.4 kg

DRUGS (1)
  1. TORISEL [Suspect]
     Route: 042
     Dates: start: 20100201, end: 20100517

REACTIONS (1)
  - HEPATITIS [None]
